FAERS Safety Report 18488975 (Version 1)
Quarter: 2020Q4

REPORT INFORMATION
  Report Type: Spontaneous
  Country: US (occurrence: US)
  Receive Date: 20201110
  Receipt Date: 20201110
  Transmission Date: 20210114
  Serious: Yes (Other)
  Sender: FDA-Public Use
  Company Number: US-009507513-2011USA003267

PATIENT
  Age: 82 Year
  Sex: Female
  Weight: 140 kg

DRUGS (27)
  1. PRINIVIL [Suspect]
     Active Substance: LISINOPRIL
     Indication: HYPERTENSION
     Dosage: UNK, UNKNOWN
     Route: 065
  2. CHOLECALCIFEROL [Concomitant]
     Active Substance: CHOLECALCIFEROL
     Indication: PRODUCT USED FOR UNKNOWN INDICATION
     Dosage: 1000 U, UNK
     Route: 048
  3. KRILL OIL [Concomitant]
     Active Substance: DIETARY SUPPLEMENT\KRILL OIL
     Indication: PRODUCT USED FOR UNKNOWN INDICATION
     Dosage: 80 MG, PRN
     Route: 048
  4. EMERGEN C [Concomitant]
     Active Substance: MINERALS\VITAMINS
     Indication: PRODUCT USED FOR UNKNOWN INDICATION
     Route: 048
  5. MAGNESIUM CITRATE. [Concomitant]
     Active Substance: MAGNESIUM CITRATE
     Indication: PRODUCT USED FOR UNKNOWN INDICATION
     Dosage: 500 MG, UNK
     Route: 048
  6. OPTIVE [Concomitant]
     Active Substance: CARBOXYMETHYLCELLULOSE SODIUM\GLYCERIN
  7. FOLIC ACID (+) VITAMIN B COMPLEX [Concomitant]
     Indication: PRODUCT USED FOR UNKNOWN INDICATION
     Route: 048
  8. CINNAMON. [Concomitant]
     Active Substance: CINNAMON
     Indication: PRODUCT USED FOR UNKNOWN INDICATION
     Dosage: 500 MG, UNK
     Route: 048
  9. CHOLINE [Concomitant]
     Active Substance: CHOLINE
     Indication: PRODUCT USED FOR UNKNOWN INDICATION
     Dosage: 250 MG, UNK
     Route: 048
  10. GINGER. [Concomitant]
     Active Substance: GINGER
     Indication: PRODUCT USED FOR UNKNOWN INDICATION
     Dosage: UNK
  11. HYDROCHLOROTHIAZIDE. [Concomitant]
     Active Substance: HYDROCHLOROTHIAZIDE
     Indication: HYPERTENSION
     Dosage: 12.5 MG, DAILY
     Route: 048
  12. POTASSIUM CHLORIDE. [Concomitant]
     Active Substance: POTASSIUM CHLORIDE
  13. GRAPE SEEDS [Concomitant]
     Indication: PRODUCT USED FOR UNKNOWN INDICATION
     Route: 048
  14. GINGER. [Concomitant]
     Active Substance: GINGER
     Dosage: UNK
  15. MELATONIN [Concomitant]
     Active Substance: MELATONIN
     Indication: PRODUCT USED FOR UNKNOWN INDICATION
     Dosage: 3 MG, DAILY
     Route: 048
  16. KELP [Concomitant]
     Active Substance: KELP
     Dosage: UNK
  17. ACETAMINOPHEN. [Concomitant]
     Active Substance: ACETAMINOPHEN
  18. TYLENOL [Concomitant]
     Active Substance: ACETAMINOPHEN
     Indication: PRODUCT USED FOR UNKNOWN INDICATION
     Dosage: 500 MG, UNK
     Route: 065
  19. GARLIC. [Concomitant]
     Active Substance: GARLIC
     Indication: PRODUCT USED FOR UNKNOWN INDICATION
     Dosage: 1000 MG, UNK
     Route: 048
  20. BIOCODEX FLORASTOR [Concomitant]
     Indication: PRODUCT USED FOR UNKNOWN INDICATION
     Dosage: 250 MG, DAILY
     Route: 048
  21. COD LIVER OIL [Concomitant]
     Active Substance: COD LIVER OIL
     Indication: PRODUCT USED FOR UNKNOWN INDICATION
     Route: 048
  22. KELP [Concomitant]
     Active Substance: KELP
     Indication: PRODUCT USED FOR UNKNOWN INDICATION
     Dosage: 150 UG, UNK
     Route: 048
  23. ALFALFA [Concomitant]
     Active Substance: ALFALFA
     Indication: PRODUCT USED FOR UNKNOWN INDICATION
     Dosage: UNK, TID
     Route: 048
  24. FORTEO [Suspect]
     Active Substance: TERIPARATIDE
     Indication: PRODUCT USED FOR UNKNOWN INDICATION
     Dosage: UNK
     Route: 065
  25. COENZYME Q10 PLUS VITAMIN E [Concomitant]
     Indication: PRODUCT USED FOR UNKNOWN INDICATION
     Dosage: 200 MG, UNK
     Route: 048
  26. FOLIC ACID. [Concomitant]
     Active Substance: FOLIC ACID
  27. FISH OIL [Concomitant]
     Active Substance: FISH OIL

REACTIONS (48)
  - Chest discomfort [Unknown]
  - Blepharitis [Unknown]
  - Swelling of eyelid [Unknown]
  - Vitreous detachment [Unknown]
  - Swelling face [Unknown]
  - Facial neuralgia [Unknown]
  - Mitral valve incompetence [Unknown]
  - Hypertension [Unknown]
  - Glaucoma [Unknown]
  - Cardiomegaly [Unknown]
  - Mood altered [Unknown]
  - Scoliosis [Unknown]
  - Skin exfoliation [Unknown]
  - Vision blurred [Unknown]
  - Left ventricular dysfunction [Unknown]
  - Palpitations [Unknown]
  - Hypergammaglobulinaemia benign monoclonal [Unknown]
  - Dyspnoea [Not Recovered/Not Resolved]
  - Lung hyperinflation [Unknown]
  - Dizziness [Unknown]
  - Lacrimation increased [Unknown]
  - Stress [Unknown]
  - Inferior vena cava dilatation [Unknown]
  - Aortic valve incompetence [Unknown]
  - Spinal osteoarthritis [Unknown]
  - Mitral valve calcification [Unknown]
  - Migraine [Unknown]
  - Tricuspid valve incompetence [Unknown]
  - Headache [Unknown]
  - Dermatochalasis [Unknown]
  - Interstitial lung disease [Unknown]
  - Eyelid ptosis [Unknown]
  - Aortic arteriosclerosis [Unknown]
  - Oedema peripheral [Unknown]
  - Right atrial dilatation [Unknown]
  - Fatigue [Unknown]
  - Pleural thickening [Unknown]
  - Anaemia [Unknown]
  - Meibomian gland dysfunction [Unknown]
  - Blood immunoglobulin A decreased [Unknown]
  - Aortic disorder [Unknown]
  - Carotid artery disease [Unknown]
  - Breast mass [Unknown]
  - Left atrial dilatation [Unknown]
  - Road traffic accident [Unknown]
  - Pruritus [Unknown]
  - Somnolence [Unknown]
  - Chest pain [Unknown]

NARRATIVE: CASE EVENT DATE: 2016
